FAERS Safety Report 5993755-6 (Version None)
Quarter: 2008Q4

REPORT INFORMATION
  Report Type: 
  Country: None (occurrence: None)
  Receive Date: 20081212
  Receipt Date: 20081202
  Transmission Date: 20090506
  Serious: Yes (Hospitalization, Other)
  Sender: FDA-Public Use
  Company Number: US-AMGEN-QUU321790

PATIENT
  Sex: Female

DRUGS (2)
  1. ENBREL [Suspect]
     Indication: RHEUMATOID ARTHRITIS
     Route: 058
     Dates: start: 19990901
  2. METHOTREXATE [Concomitant]
     Route: 048

REACTIONS (10)
  - ABDOMINAL PAIN [None]
  - FALL [None]
  - GALLBLADDER DISORDER [None]
  - INJECTION SITE PAIN [None]
  - POST PROCEDURAL INFECTION [None]
  - RHEUMATOID ARTHRITIS [None]
  - STOMATITIS [None]
  - TOOTH INFECTION [None]
  - VOMITING [None]
  - WRIST FRACTURE [None]
